FAERS Safety Report 4452911-9 (Version None)
Quarter: 2004Q3

REPORT INFORMATION
  Report Type: 
  Country: None (occurrence: None)
  Receive Date: 20040916
  Receipt Date: 20040902
  Transmission Date: 20050211
  Serious: Yes (Hospitalization, Other)
  Sender: FDA-Public Use
  Company Number: 2004063602

PATIENT
  Age: 64 Year
  Sex: Male
  Weight: 71.2147 kg

DRUGS (3)
  1. LIPITOR [Suspect]
     Indication: BLOOD CHOLESTEROL INCREASED
     Dosage: SEE IMAGE
     Route: 065
     Dates: start: 19960101
  2. CELECOXIB (CELECOXIB) [Suspect]
     Indication: INFLAMMATION
     Dosage: SEE IMAGE
     Route: 065
  3. HMG COA REDUCTASE INHIBITORS (HMG COA REDUCTASE  INHIBITORS) [Suspect]
     Indication: ILL-DEFINED DISORDER
     Dosage: SEE IMAGE
     Route: 065

REACTIONS (4)
  - ABDOMINAL PAIN UPPER [None]
  - ANKLE FRACTURE [None]
  - FLATULENCE [None]
  - INFLAMMATION [None]
